FAERS Safety Report 18355618 (Version 1)
Quarter: 2020Q4

REPORT INFORMATION
  Report Type: Spontaneous
  Country: US (occurrence: US)
  Receive Date: 20201007
  Receipt Date: 20201007
  Transmission Date: 20210114
  Serious: Yes (Life-Threatening, Hospitalization, Congenital Anomaly, Other)
  Sender: FDA-Public Use
  Company Number: US-SLATE RUN PHARMACEUTICALS-20US000286

PATIENT

DRUGS (10)
  1. BETAMETHASONE. [Concomitant]
     Active Substance: BETAMETHASONE
     Indication: MATERNAL EXPOSURE TIMING UNSPECIFIED
     Route: 064
  2. AZITHROMYCIN USP [Suspect]
     Active Substance: AZITHROMYCIN
     Indication: MATERNAL EXPOSURE TIMING UNSPECIFIED
     Dosage: UNK
     Route: 063
  3. CEFTRIAXONE. [Concomitant]
     Active Substance: CEFTRIAXONE
     Indication: MATERNAL EXPOSURE TIMING UNSPECIFIED
     Route: 064
  4. METHYLPREDNISOLONE. [Concomitant]
     Active Substance: METHYLPREDNISOLONE
     Indication: MATERNAL EXPOSURE TIMING UNSPECIFIED
     Route: 064
  5. INSULIN [Concomitant]
     Active Substance: INSULIN NOS
     Indication: MATERNAL EXPOSURE TIMING UNSPECIFIED
     Route: 064
  6. PLASMA [Concomitant]
     Active Substance: HUMAN PLASMA
     Indication: MATERNAL EXPOSURE TIMING UNSPECIFIED
     Route: 064
  7. HYDROXYCHLOROQUINE [Concomitant]
     Active Substance: HYDROXYCHLOROQUINE
     Indication: MATERNAL EXPOSURE TIMING UNSPECIFIED
     Route: 064
  8. AZITHROMYCIN USP [Suspect]
     Active Substance: AZITHROMYCIN
     Dosage: UNK
     Route: 064
  9. HEPARIN [Concomitant]
     Active Substance: HEPARIN SODIUM
     Indication: MATERNAL EXPOSURE TIMING UNSPECIFIED
     Route: 064
  10. REMDESIVIR. [Concomitant]
     Active Substance: REMDESIVIR
     Indication: MATERNAL EXPOSURE TIMING UNSPECIFIED
     Route: 064

REACTIONS (19)
  - Tachycardia foetal [Unknown]
  - Apgar score low [Unknown]
  - Hypoxic-ischaemic encephalopathy [Unknown]
  - Foetal exposure during pregnancy [Unknown]
  - Coagulation test abnormal [Recovered/Resolved]
  - Hydronephrosis [Recovered/Resolved]
  - Exposure via breast milk [Unknown]
  - Intestinal malrotation [Unknown]
  - Premature baby [Unknown]
  - Decreased activity [Recovering/Resolving]
  - Neonatal respiratory distress syndrome [Unknown]
  - X-ray gastrointestinal tract abnormal [Unknown]
  - Foetal heart rate deceleration abnormality [Unknown]
  - Metabolic acidosis [Unknown]
  - Foetal distress syndrome [Unknown]
  - Hypotonia neonatal [Recovering/Resolving]
  - Bladder dilatation [Recovered/Resolved]
  - Urinary tract obstruction [Unknown]
  - SARS-CoV-2 test positive [Unknown]
